FAERS Safety Report 20292056 (Version 1)
Quarter: 2022Q1

REPORT INFORMATION
  Report Type: Spontaneous
  Country: JP (occurrence: JP)
  Receive Date: 20220104
  Receipt Date: 20220104
  Transmission Date: 20220423
  Serious: No
  Sender: FDA-Public Use
  Company Number: JP-LUPIN PHARMACEUTICALS INC.-2021-26285

PATIENT
  Age: 73 Year
  Sex: Male

DRUGS (8)
  1. METHYLPREDNISOLONE [Suspect]
     Active Substance: METHYLPREDNISOLONE
     Indication: COVID-19 pneumonia
     Dosage: 1 MILLIGRAM/KILOGRAM
     Route: 065
  2. METHYLPREDNISOLONE [Suspect]
     Active Substance: METHYLPREDNISOLONE
     Dosage: 1 GRAM, QD
     Route: 065
  3. METHYLPREDNISOLONE [Suspect]
     Active Substance: METHYLPREDNISOLONE
     Dosage: 0.5 MILLIGRAM/KILOGRAM
     Route: 065
  4. FAVIPIRAVIR [Suspect]
     Active Substance: FAVIPIRAVIR
     Indication: COVID-19 pneumonia
     Dosage: TWO LOADING DOSES
     Route: 065
  5. FAVIPIRAVIR [Suspect]
     Active Substance: FAVIPIRAVIR
     Dosage: 800 MILLIGRAM, BID
     Route: 065
  6. CHLOROQUINE [Suspect]
     Active Substance: CHLOROQUINE
     Indication: COVID-19 pneumonia
     Dosage: 400 MILLIGRAM, QD
     Route: 065
  7. IVERMECTIN [Suspect]
     Active Substance: IVERMECTIN
     Indication: COVID-19 pneumonia
     Dosage: 15 MILLIGRAM
     Route: 065
  8. RITUXIMAB [Concomitant]
     Active Substance: RITUXIMAB
     Indication: Extranodal marginal zone B-cell lymphoma (MALT type) stage I
     Dosage: EIGHT DOSES
     Route: 065

REACTIONS (1)
  - Off label use [Unknown]
